FAERS Safety Report 17255920 (Version 1)
Quarter: 2019Q4

REPORT INFORMATION
  Report Type: Spontaneous
  Country: US (occurrence: US)
  Receive Date: 20191216
  Receipt Date: 20191216
  Transmission Date: 20200122
  Serious: Yes (Hospitalization)
  Sender: FDA-Public Use
  Company Number: None

PATIENT
  Sex: Female

DRUGS (15)
  1. METHIMAZOLE. [Concomitant]
     Active Substance: METHIMAZOLE
  2. RISPERIDONE. [Concomitant]
     Active Substance: RISPERIDONE
  3. TACROLIMUS 1MG CAP [Suspect]
     Active Substance: TACROLIMUS
     Indication: RENAL TRANSPLANT
     Dosage: ?          OTHER DOSE:3-2 CAPS; QAM QPM PO?
     Route: 048
     Dates: start: 20150803
  4. CLONIDINE. [Concomitant]
     Active Substance: CLONIDINE
  5. ELIQUIS [Concomitant]
     Active Substance: APIXABAN
  6. VITAMIN D [Concomitant]
     Active Substance: VITAMIN D NOS
  7. ZYRTEC ALLGY [Concomitant]
  8. VIMPAT [Concomitant]
     Active Substance: LACOSAMIDE
  9. PREDNISONE. [Concomitant]
     Active Substance: PREDNISONE
  10. RISEDRONATE [Concomitant]
     Active Substance: RISEDRONATE SODIUM
  11. ASPIRIN. [Concomitant]
     Active Substance: ASPIRIN
  12. ESCITALOPRAM [Concomitant]
     Active Substance: ESCITALOPRAM OXALATE
  13. DOC-Q-LAX [Concomitant]
  14. DAPSONE. [Concomitant]
     Active Substance: DAPSONE
  15. TYLENOL/COD [Concomitant]

REACTIONS (1)
  - Migraine [None]
